FAERS Safety Report 25797021 (Version 1)
Quarter: 2025Q3

REPORT INFORMATION
  Report Type: Spontaneous
  Country: US (occurrence: US)
  Receive Date: 20250912
  Receipt Date: 20250912
  Transmission Date: 20251020
  Serious: No
  Sender: ASTELLAS
  Company Number: US-ASTELLAS-2025-AER-049454

PATIENT
  Age: 83 Year
  Sex: Male

DRUGS (1)
  1. CRESEMBA [Suspect]
     Active Substance: ISAVUCONAZONIUM SULFATE
     Indication: Wound
     Dosage: 2 X 186 MG ONCE DAILY
     Route: 065
     Dates: start: 202507

REACTIONS (3)
  - Product packaging issue [Unknown]
  - Product storage error [Unknown]
  - Off label use [Unknown]
